FAERS Safety Report 14941831 (Version 1)
Quarter: 2018Q2

REPORT INFORMATION
  Report Type: Spontaneous
  Country: IT (occurrence: IT)
  Receive Date: 20180527
  Receipt Date: 20180527
  Transmission Date: 20180711
  Serious: Yes (Hospitalization)
  Sender: FDA-Public Use
  Company Number: PHHY2018IT007575

PATIENT
  Sex: Male

DRUGS (1)
  1. ETANERCEPT [Suspect]
     Active Substance: ETANERCEPT
     Indication: SPONDYLITIS
     Dosage: 50 MG, QW
     Route: 065

REACTIONS (8)
  - Inflammatory marker increased [Recovered/Resolved]
  - Retroperitoneal fibrosis [Recovered/Resolved]
  - Pyrexia [Recovered/Resolved]
  - Kidney enlargement [Unknown]
  - Hydronephrosis [Unknown]
  - Ureteric stenosis [Unknown]
  - Blood creatinine increased [Unknown]
  - Back pain [Recovered/Resolved]
